FAERS Safety Report 23548014 (Version 1)
Quarter: 2024Q1

REPORT INFORMATION
  Report Type: Spontaneous
  Country: JP (occurrence: JP)
  Receive Date: 20240221
  Receipt Date: 20240221
  Transmission Date: 20240409
  Serious: Yes (Death, Other)
  Sender: FDA-Public Use
  Company Number: JP-STRIDES ARCOLAB LIMITED-2024SP002083

PATIENT
  Age: 70 Year
  Sex: Female

DRUGS (3)
  1. PREDNISOLONE [Suspect]
     Active Substance: PREDNISOLONE
     Indication: Dermatomyositis
     Dosage: 70 MILLIGRAM/DAY (1 MG/KG/D)
     Route: 048
  2. PREDNISOLONE [Suspect]
     Active Substance: PREDNISOLONE
     Dosage: UNK, (DOSE REDUCED)
     Route: 065
  3. TACROLIMUS [Suspect]
     Active Substance: TACROLIMUS
     Indication: Dermatomyositis
     Dosage: 4 MILLIGRAM/DAY
     Route: 065

REACTIONS (7)
  - Sepsis [Fatal]
  - Infection [Fatal]
  - Non-Hodgkin^s lymphoma [Fatal]
  - Steroid diabetes [Unknown]
  - Therapy non-responder [Unknown]
  - Cytomegalovirus infection [Unknown]
  - Off label use [Unknown]
